FAERS Safety Report 4301727-2 (Version None)
Quarter: 2004Q1

REPORT INFORMATION
  Report Type: 
  Country: None (occurrence: None)
  Receive Date: 20040218
  Receipt Date: 20031120
  Transmission Date: 20041129
  Serious: Yes (Hospitalization)
  Sender: FDA-Public Use
  Company Number: 2003-11-1489

PATIENT
  Age: 43 Year
  Sex: Male

DRUGS (2)
  1. PEG-INTRON [Suspect]
     Indication: HEPATITIS C
     Route: 058
  2. REBETOL [Suspect]
     Indication: HEPATITIS C
     Route: 048

REACTIONS (1)
  - DRUG INEFFECTIVE [None]
